FAERS Safety Report 7878439-1 (Version None)
Quarter: 2011Q4

REPORT INFORMATION
  Report Type: 
  Country: None (occurrence: None)
  Receive Date: 20111012
  Receipt Date: 20100916
  Transmission Date: 20120403
  Serious: Yes (Other)
  Sender: FDA-Public Use
  Company Number: 2010SP049683

PATIENT
  Age: 8 Year
  Sex: Female

DRUGS (3)
  1. ALBUTEROL [Suspect]
     Indication: ASTHMA
  2. MOMETASONE FUROATE [Suspect]
     Indication: ASTHMA
     Dosage: INH
     Route: 055
  3. FLUTICASONE PROPIONATE [Suspect]
     Indication: ASTHMA

REACTIONS (5)
  - URTICARIA [None]
  - WHEEZING [None]
  - PERIORBITAL OEDEMA [None]
  - PRURITUS [None]
  - BRONCHOSPASM PARADOXICAL [None]
